FAERS Safety Report 24433437 (Version 5)
Quarter: 2024Q4

REPORT INFORMATION
  Report Type: Spontaneous
  Country: US (occurrence: US)
  Receive Date: 20241014
  Receipt Date: 20241231
  Transmission Date: 20250114
  Serious: No
  Sender: BIOVITRUM
  Company Number: US-BIOVITRUM-2024-US-013051

PATIENT
  Age: 76 Year
  Sex: Male

DRUGS (2)
  1. VONJO [Suspect]
     Active Substance: PACRITINIB
     Indication: Myeloproliferative neoplasm
     Dosage: TWICE A DAY
     Route: 048
     Dates: start: 20240823
  2. VONJO [Suspect]
     Active Substance: PACRITINIB
     Dosage: TWICE A DAY
     Route: 048
     Dates: start: 20240823

REACTIONS (9)
  - Night sweats [Unknown]
  - Blood iron decreased [Unknown]
  - Liver disorder [Unknown]
  - Product dose omission issue [Unknown]
  - Dysuria [Unknown]
  - Thyroid mass [Unknown]
  - Urinary tract infection [Unknown]
  - Off label use [Not Recovered/Not Resolved]
  - Product dose omission in error [Unknown]

NARRATIVE: CASE EVENT DATE: 20240823
